FAERS Safety Report 11545615 (Version 2)
Quarter: 2015Q4

REPORT INFORMATION
  Report Type: Spontaneous
  Country: KR (occurrence: KR)
  Receive Date: 20150924
  Receipt Date: 20151002
  Transmission Date: 20160304
  Serious: Yes (Other)
  Sender: FDA-Public Use
  Company Number: KR-PFIZER INC-2015315656

PATIENT
  Age: 73 Year
  Sex: Male

DRUGS (4)
  1. ASPIRIN /00002701/ [Suspect]
     Active Substance: ASPIRIN
     Dosage: 100 MG, 1X/DAY
     Route: 048
     Dates: start: 200205
  2. TENORMIN [Suspect]
     Active Substance: ATENOLOL
     Dosage: 100 MG, 2X/DAY
     Route: 048
     Dates: start: 200205
  3. LIPITOR [Suspect]
     Active Substance: ATORVASTATIN CALCIUM
     Indication: HYPERLIPIDAEMIA
     Dosage: 10 MG, 1X/DAY
     Route: 048
     Dates: start: 200205
  4. TENORMIN [Suspect]
     Active Substance: ATENOLOL
     Dosage: 100 MG, 1X/DAY
     Route: 048

REACTIONS (4)
  - Liver function test abnormal [Not Recovered/Not Resolved]
  - Presbyacusis [Not Recovered/Not Resolved]
  - Tinnitus [Recovered/Resolved]
  - Sleep disorder [Not Recovered/Not Resolved]

NARRATIVE: CASE EVENT DATE: 201504
